FAERS Safety Report 4616078-6 (Version None)
Quarter: 2005Q1

REPORT INFORMATION
  Report Type: 
  Country: None (occurrence: None)
  Receive Date: 20050321
  Receipt Date: 20050304
  Transmission Date: 20050727
  Serious: Yes (Hospitalization)
  Sender: FDA-Public Use
  Company Number: DSA_26112_2005

PATIENT
  Age: 63 Year
  Sex: Male

DRUGS (12)
  1. DILTIAZEM HYDROCHLORIDE [Suspect]
     Indication: ESSENTIAL HYPERTENSION
     Dosage: 180 MG Q DAY PO
     Route: 048
     Dates: end: 20040222
  2. TRITACE [Suspect]
     Indication: ESSENTIAL HYPERTENSION
     Dosage: 2 MG Q DAY PO
     Route: 048
  3. LASIX [Suspect]
     Dosage: 20 MG Q DAY PO
     Route: 048
  4. ATENOLOL [Suspect]
     Indication: ESSENTIAL HYPERTENSION
     Dosage: 25 MG Q DAY PO
     Route: 048
     Dates: start: 20040222
  5. PRAZOSIN HCL [Concomitant]
     Indication: ESSENTIAL HYPERTENSION
     Dosage: 6 MG Q DAY PO
     Route: 048
  6. CYCLOSPORINE [Concomitant]
  7. PREDNISOLONE [Concomitant]
  8. MYCOPHENOLATE MOFETIL [Concomitant]
  9. CALCIUM CARBONATE [Concomitant]
  10. POTASSIUM CHLORIDE [Concomitant]
  11. CALCITRIOL [Concomitant]
  12. VALACYCLOVIR HCL [Concomitant]

REACTIONS (3)
  - BRADYCARDIA [None]
  - HYPOTENSION [None]
  - SHOCK [None]
